FAERS Safety Report 5292081-0 (Version None)
Quarter: 2007Q2

REPORT INFORMATION
  Report Type: 
  Country: None (occurrence: None)
  Receive Date: 20070403
  Receipt Date: 20070327
  Transmission Date: 20071010
  Serious: Yes (Disabling)
  Sender: FDA-Public Use
  Company Number: 154328ISR

PATIENT
  Sex: Male

DRUGS (2)
  1. CIPROFLOXACIN [Suspect]
     Indication: PROSTATITIS
     Dosage: 500 MG (250 MG, 2 IN 1 D) ORAL
     Route: 048
     Dates: start: 20070216, end: 20070219
  2. CIPROFLOXACIN [Suspect]
     Indication: URINARY TRACT INFECTION
     Dosage: 500 MG (250 MG, 2 IN 1 D) ORAL
     Route: 048
     Dates: start: 20070216, end: 20070219

REACTIONS (2)
  - DYSKINESIA [None]
  - TREMOR [None]
